FAERS Safety Report 15423459 (Version 1)
Quarter: 2018Q4

REPORT INFORMATION
  Report Type: Spontaneous
  Country: US (occurrence: US)
  Receive Date: 20180925
  Receipt Date: 20180925
  Transmission Date: 20190204
  Serious: No
  Sender: FDA-Public Use
  Company Number: US-ACCORD-058429

PATIENT
  Sex: Male

DRUGS (1)
  1. NALTREXONE ACCORD [Suspect]
     Active Substance: NALTREXONE HYDROCHLORIDE
     Indication: PRODUCT USED FOR UNKNOWN INDICATION
     Dosage: STRENGTH: 50 MG

REACTIONS (2)
  - Wrong product administered [Unknown]
  - Product packaging issue [Unknown]
